FAERS Safety Report 8968289 (Version 2)
Quarter: 2014Q2

REPORT INFORMATION
  Report Type: Spontaneous
  Country: US (occurrence: US)
  Receive Date: 20121218
  Receipt Date: 20140410
  Transmission Date: 20141212
  Serious: Yes (Life-Threatening, Hospitalization)
  Sender: FDA-Public Use
  Company Number: US-BAYER-2012-130324

PATIENT
  Age: 24 Year
  Sex: Female

DRUGS (9)
  1. YAZ [Suspect]
     Indication: CONTRACEPTION
  2. BEYAZ [Suspect]
  3. YASMIN [Suspect]
  4. OCELLA [Suspect]
  5. GIANVI [Suspect]
  6. SAFYRAL [Suspect]
  7. NORCO [Concomitant]
     Indication: PAIN
     Dosage: 5/325
  8. MUPIROCIN [Concomitant]
     Indication: BACTERIAL DISEASE CARRIER
     Route: 061
  9. MULTIVITAMIN [Concomitant]

REACTIONS (8)
  - Deep vein thrombosis [Recovered/Resolved]
  - Injury [Recovered/Resolved]
  - Pain [None]
  - General physical health deterioration [Recovered/Resolved]
  - Anxiety [None]
  - Anhedonia [None]
  - Emotional distress [None]
  - Pain [Recovered/Resolved]
